FAERS Safety Report 8940704 (Version 1)
Quarter: 2012Q4

REPORT INFORMATION
  Report Type: 
  Country: CA (occurrence: CA)
  Receive Date: 20121203
  Receipt Date: 20121203
  Transmission Date: 20130627
  Serious: Yes (Death, Other)
  Sender: FDA-Public Use
  Company Number: CA-JNJFOC-20121200176

PATIENT
  Sex: Male

DRUGS (1)
  1. LISTERINE MOUTHWASH [Suspect]
     Indication: PRODUCT USED FOR UNKNOWN INDICATION
     Route: 048

REACTIONS (4)
  - Death [Fatal]
  - Convulsion [Unknown]
  - Intentional drug misuse [Unknown]
  - Drug dependence [Unknown]
